FAERS Safety Report 4514403-8 (Version None)
Quarter: 2004Q4

REPORT INFORMATION
  Report Type: 
  Country: None (occurrence: None)
  Receive Date: 20041124
  Receipt Date: 20041111
  Transmission Date: 20050328
  Serious: Yes (Other)
  Sender: FDA-Public Use
  Company Number: A0532746A

PATIENT
  Age: 38 Year
  Sex: Male

DRUGS (2)
  1. NICODERM CQ [Suspect]
     Dosage: TRANSDERMAL
     Route: 062
  2. GINSENG [Concomitant]

REACTIONS (10)
  - ABDOMINAL PAIN [None]
  - DRY MOUTH [None]
  - HALLUCINATION [None]
  - HYPERHIDROSIS [None]
  - INSOMNIA [None]
  - MYALGIA [None]
  - NERVOUSNESS [None]
  - PALPITATIONS [None]
  - PHARYNGITIS [None]
  - VOMITING [None]
